FAERS Safety Report 20824204 (Version 1)
Quarter: 2022Q2

REPORT INFORMATION
  Report Type: Spontaneous
  Country: US (occurrence: None)
  Receive Date: 20220512
  Receipt Date: 20220512
  Transmission Date: 20220721
  Serious: Yes (Disabling)
  Sender: FDA-Public Use
  Company Number: None

PATIENT
  Age: 42 Year
  Sex: Female
  Weight: 71.1 kg

DRUGS (11)
  1. BOTOX [Suspect]
     Active Substance: ONABOTULINUMTOXINA
     Indication: Migraine
     Dosage: OTHER QUANTITY : 10 INJECTION(S);?OTHER FREQUENCY : ONCE EVERY 3 MONTH;?
     Route: 030
     Dates: start: 20220503, end: 20220503
  2. BOTOX [Suspect]
     Active Substance: ONABOTULINUMTOXINA
     Indication: Temporomandibular joint syndrome
  3. Bipap machine [Concomitant]
  4. ZOFRAN [Concomitant]
     Active Substance: ONDANSETRON HYDROCHLORIDE
  5. BENTYL [Concomitant]
     Active Substance: DICYCLOMINE HYDROCHLORIDE
  6. VITAMIN B12 [Concomitant]
     Active Substance: CYANOCOBALAMIN
  7. VITAMIN A [Concomitant]
     Active Substance: VITAMIN A
  8. VITAMIN B [Concomitant]
     Active Substance: VITAMIN B
  9. VITAMIN C [Concomitant]
     Active Substance: ASCORBIC ACID
  10. VITAMIN D [Concomitant]
     Active Substance: VITAMIN D NOS
  11. VITAMIN E [Concomitant]
     Active Substance: .ALPHA.-TOCOPHEROL

REACTIONS (14)
  - Migraine [None]
  - Abdominal discomfort [None]
  - Pyrexia [None]
  - Emotional disorder [None]
  - Aphasia [None]
  - Eyelid ptosis [None]
  - Illness [None]
  - Fatigue [None]
  - Listless [None]
  - Irritability [None]
  - Anger [None]
  - Eye disorder [None]
  - Asthenia [None]
  - Dysstasia [None]

NARRATIVE: CASE EVENT DATE: 20220509
